FAERS Safety Report 11081668 (Version 1)
Quarter: 2015Q2

REPORT INFORMATION
  Report Type: Spontaneous
  Country: US (occurrence: None)
  Receive Date: 20150430
  Receipt Date: 20150430
  Transmission Date: 20150821
  Serious: Yes (Life-Threatening, Other)
  Sender: FDA-Public Use
  Company Number: None

PATIENT
  Age: 69 Year
  Sex: Male

DRUGS (1)
  1. STIVARGA [Suspect]
     Active Substance: REGORAFENIB
     Indication: COLON CANCER
     Dosage: 40MG 2 TABLETS DAILY FOR 3 WEEKS ON AND 1 WEEK OFF
     Route: 048
     Dates: start: 20150327, end: 20150424

REACTIONS (2)
  - Rash [None]
  - Genital haemorrhage [None]

NARRATIVE: CASE EVENT DATE: 20150424
